FAERS Safety Report 16377063 (Version 2)
Quarter: 2024Q2

REPORT INFORMATION
  Report Type: Spontaneous
  Country: FR (occurrence: FR)
  Receive Date: 20190531
  Receipt Date: 20240514
  Transmission Date: 20240716
  Serious: Yes (Other)
  Sender: FDA-Public Use
  Company Number: None

PATIENT
  Age: 78 Year
  Sex: Male
  Weight: 89 kg

DRUGS (1)
  1. KEYTRUDA [Suspect]
     Active Substance: PEMBROLIZUMAB
     Indication: Lung neoplasm malignant
     Dosage: 200 MILLIGRAM, Q3W
     Route: 042
     Dates: start: 20190327, end: 20210217

REACTIONS (2)
  - Diabetes mellitus [Not Recovered/Not Resolved]
  - Polymyalgia rheumatica [Recovered/Resolved with Sequelae]

NARRATIVE: CASE EVENT DATE: 20190501
